FAERS Safety Report 9167345 (Version 1)
Quarter: 2013Q1

REPORT INFORMATION
  Report Type: Spontaneous
  Country: US (occurrence: None)
  Receive Date: 20130301
  Receipt Date: 20130301
  Transmission Date: 20140127
  Serious: Yes (Hospitalization)
  Sender: FDA-Public Use
  Company Number: IMP_06570_2013

PATIENT
  Age: 36 Year
  Sex: Male

DRUGS (6)
  1. PROMETHAZINE [Suspect]
     Indication: PRODUCT USED FOR UNKNOWN INDICATION
     Dosage: NOT THE PRESCRIBED AMOUNT 4 TO 6 TABLETS, ORAL
     Route: 048
  2. METOPROLOL [Suspect]
     Indication: PRODUCT USED FOR UNKNOWN INDICATION
     Dosage: NOT THE PRESCRIBED AMOUNT 10 TO 12 TABLETS, ORAL
     Route: 048
  3. METHAMPHETAMINE (NOT SPECIFIED) [Suspect]
     Indication: PRODUCT USED FOR UNKNOWN INDICATION
     Dosage: NOT THE PRESCRIBED AMOUNT
     Route: 048
  4. ALCOHOL [Suspect]
     Indication: PRODUCT USED FOR UNKNOWN INDICATION
     Dosage: NOT THE PRESCRIBED AMOUNT, ORAL
     Route: 048
  5. PREGABALIN [Suspect]
     Indication: PRODUCT USED FOR UNKNOWN INDICATION
     Dosage: NOT THE PRESCRIBED AMOUNT 5 TO 8 CAPSULES, ORAL
     Route: 048
  6. MECLIZINE /00072801/ [Suspect]
     Indication: PRODUCT USED FOR UNKNOWN INDICATION
     Dosage: NOT THE PRESCRIBED AMOUNT 12 TO 15 TABLETS, ORAL
     Route: 048

REACTIONS (20)
  - Suicide attempt [None]
  - Lethargy [None]
  - Dysarthria [None]
  - Unresponsive to stimuli [None]
  - Hypotension [None]
  - Bradycardia [None]
  - Pupil fixed [None]
  - Peripheral pulse decreased [None]
  - Hypoxia [None]
  - Metabolic disorder [None]
  - Respiratory failure [None]
  - Renal failure [None]
  - Adrenal insufficiency [None]
  - Hepatic ischaemia [None]
  - Visual acuity reduced [None]
  - Brain injury [None]
  - Treatment noncompliance [None]
  - Mental disorder [None]
  - Overdose [None]
  - Toxicity to various agents [None]
